FAERS Safety Report 19527359 (Version 1)
Quarter: 2021Q3

REPORT INFORMATION
  Report Type: Spontaneous
  Country: US (occurrence: US)
  Receive Date: 20210713
  Receipt Date: 20210713
  Transmission Date: 20211014
  Serious: Yes (Hospitalization)
  Sender: FDA-Public Use
  Company Number: None

PATIENT
  Age: 77 Year
  Sex: Female
  Weight: 70 kg

DRUGS (2)
  1. CYCLOPHOSPHAMIDE. [Concomitant]
     Active Substance: CYCLOPHOSPHAMIDE
     Dates: start: 20210707, end: 20210707
  2. CYCLOPHOSPHAMIDE INJECTION LIQUIED [Suspect]
     Active Substance: CYCLOPHOSPHAMIDE
     Indication: BREAST CANCER
     Dosage: ?          OTHER FREQUENCY:ONE TIME ONLY;?
     Route: 042
     Dates: start: 20210707, end: 20210707

REACTIONS (3)
  - Confusional state [None]
  - Cerebrovascular accident [None]
  - Hyponatraemia [None]

NARRATIVE: CASE EVENT DATE: 20210707
